FAERS Safety Report 4915263-3 (Version None)
Quarter: 2006Q1

REPORT INFORMATION
  Report Type: 
  Country: None (occurrence: None)
  Receive Date: 20060216
  Receipt Date: 20060216
  Transmission Date: 20060701
  Serious: Yes (Hospitalization)
  Sender: FDA-Public Use
  Company Number: None

PATIENT
  Sex: Male
  Weight: 81.6475 kg

DRUGS (5)
  1. COUMADIN [Suspect]
     Indication: ATRIAL FIBRILLATION
     Dosage: PO    PRIOR TO ADMISSION
     Route: 048
  2. ALBUTEROL [Concomitant]
  3. SINGULAIR [Concomitant]
  4. CARTIA XT [Concomitant]
  5. AZMACORT [Concomitant]

REACTIONS (2)
  - COAGULOPATHY [None]
  - CYSTITIS HAEMORRHAGIC [None]
